FAERS Safety Report 6829662-6 (Version None)
Quarter: 2010Q3

REPORT INFORMATION
  Report Type: 
  Country: None (occurrence: None)
  Receive Date: 20100709
  Receipt Date: 20070424
  Transmission Date: 20110219
  Serious: No
  Sender: FDA-Public Use
  Company Number: US-PFIZER INC-2007010531

PATIENT
  Sex: Female
  Weight: 50.8 kg

DRUGS (6)
  1. CHANTIX [Suspect]
     Indication: SMOKING CESSATION THERAPY
     Dates: start: 20070101, end: 20070301
  2. XANAX [Concomitant]
     Indication: ANXIETY
  3. MIRALAX [Concomitant]
  4. ACETYLSALICYLIC ACID [Concomitant]
  5. CALCIUM CARBONATE [Concomitant]
  6. VITAMINS [Concomitant]

REACTIONS (9)
  - CHEST PAIN [None]
  - CHILLS [None]
  - DECREASED APPETITE [None]
  - ERYTHEMA [None]
  - INSOMNIA [None]
  - MALAISE [None]
  - NAUSEA [None]
  - PYREXIA [None]
  - SWELLING FACE [None]
